FAERS Safety Report 5676958-X (Version None)
Quarter: 2008Q2

REPORT INFORMATION
  Report Type: 
  Country: None (occurrence: None)
  Receive Date: 20080311
  Receipt Date: 20080207
  Transmission Date: 20081010
  Serious: No
  Sender: FDA-Public Use
  Company Number: 002#4#2008-00053

PATIENT
  Sex: Female

DRUGS (3)
  1. NEUPRO [Suspect]
     Indication: PARKINSON'S DISEASE
     Dosage: SEE IMAGE
     Route: 062
     Dates: start: 20071201
  2. AZILECT [Concomitant]
  3. STALEVO 100 [Concomitant]

REACTIONS (2)
  - APPLICATION SITE RASH [None]
  - APPLICATION SITE REACTION [None]
